FAERS Safety Report 13700258 (Version 1)
Quarter: 2017Q2

REPORT INFORMATION
  Report Type: Spontaneous
  Country: CN (occurrence: CN)
  Receive Date: 20170629
  Receipt Date: 20170629
  Transmission Date: 20170830
  Serious: Yes (Life-Threatening, Hospitalization, Other)
  Sender: FDA-Public Use
  Company Number: CN-SUN PHARMACEUTICAL INDUSTRIES LTD-2017RR-143807

PATIENT
  Age: 30 Year
  Sex: Female

DRUGS (3)
  1. HUMAN MENOPAUSAL GONADOTROPIN [Suspect]
     Active Substance: MENOTROPINS
     Indication: OVULATION INDUCTION
     Route: 065
  2. HUMAN CHORIONIC GONADOTROPIN [Suspect]
     Active Substance: GONADOTROPHIN, CHORIONIC
     Indication: OVULATION INDUCTION
     Route: 065
  3. LETROZOLE. [Suspect]
     Active Substance: LETROZOLE
     Indication: OVULATION INDUCTION
     Route: 065

REACTIONS (4)
  - Ovarian hyperstimulation syndrome [Recovering/Resolving]
  - Platelet count decreased [None]
  - Multiple pregnancy [None]
  - Cerebral thrombosis [Recovered/Resolved with Sequelae]
